FAERS Safety Report 5353967-1 (Version None)
Quarter: 2007Q2

REPORT INFORMATION
  Report Type: 
  Country: None (occurrence: None)
  Receive Date: 20070608
  Receipt Date: 20070608
  Transmission Date: 20071010
  Serious: Yes (Life-Threatening)
  Sender: FDA-Public Use
  Company Number: None

PATIENT
  Age: 57 Year
  Sex: Female

DRUGS (2)
  1. ZOLPIDEM [Suspect]
     Indication: INSOMNIA
     Dosage: 10MG 1QHS PO
     Route: 048
     Dates: start: 20070604, end: 20070605
  2. ZOLPIDEM [Suspect]
     Indication: INSOMNIA
     Dosage: 10MG 1QHS PO
     Route: 048
     Dates: start: 20070604, end: 20070605

REACTIONS (5)
  - DIARRHOEA [None]
  - DYSKINESIA [None]
  - HALLUCINATION [None]
  - MUSCLE SPASMS [None]
  - TACHYCARDIA [None]
